FAERS Safety Report 9270712 (Version 3)
Quarter: 2013Q3

REPORT INFORMATION
  Report Type: Spontaneous
  Country: US (occurrence: US)
  Receive Date: 20130503
  Receipt Date: 20130802
  Transmission Date: 20140515
  Serious: Yes (Death, Hospitalization, Other)
  Sender: FDA-Public Use
  Company Number: US-BAXTER-2013BAX015775

PATIENT
  Sex: Male

DRUGS (3)
  1. DIANEAL LOW CALCIUM [Suspect]
     Indication: PERITONEAL DIALYSIS
     Route: 033
  2. DIANEAL LOW CALCIUM (ULTRABAG) [Suspect]
     Indication: PERITONEAL DIALYSIS
     Route: 033
  3. PROCRIT [Concomitant]
     Indication: HAEMOGLOBIN DECREASED
     Route: 065

REACTIONS (7)
  - Death [Fatal]
  - Condition aggravated [Not Recovered/Not Resolved]
  - Impaired healing [Not Recovered/Not Resolved]
  - Post procedural complication [Not Recovered/Not Resolved]
  - Localised infection [Not Recovered/Not Resolved]
  - Poor peripheral circulation [Not Recovered/Not Resolved]
  - Haemoglobin decreased [Recovering/Resolving]
